FAERS Safety Report 5684538-5 (Version None)
Quarter: 2008Q1

REPORT INFORMATION
  Report Type: 
  Country: None (occurrence: None)
  Receive Date: 20080328
  Receipt Date: 20070301
  Transmission Date: 20080703
  Serious: Yes (Hospitalization)
  Sender: FDA-Public Use
  Company Number: US-BRISTOL-MYERS SQUIBB COMPANY-13655329

PATIENT
  Age: 45 Year
  Sex: Male

DRUGS (3)
  1. ERBITUX [Suspect]
     Indication: COLON CANCER
     Route: 042
  2. BENADRYL [Concomitant]
     Route: 042
  3. TYLENOL (CAPLET) [Concomitant]
     Route: 048

REACTIONS (2)
  - DYSPHAGIA [None]
  - DYSPNOEA [None]
